FAERS Safety Report 5196200-6 (Version None)
Quarter: 2006Q4

REPORT INFORMATION
  Report Type: 
  Country: None (occurrence: None)
  Receive Date: 20061221
  Receipt Date: 20061214
  Transmission Date: 20070319
  Serious: Yes (Other)
  Sender: FDA-Public Use
  Company Number: 100#03#2006-02800

PATIENT
  Age: 69 Year
  Sex: Female

DRUGS (2)
  1. CITALOPRAM (CITALOPRAM) (CITALOPRAM) [Suspect]
     Indication: DEPRESSION
     Dosage: 10 MG ORAL
     Route: 048
     Dates: start: 20061113, end: 20061113
  2. HUMIRA [Suspect]
     Indication: RHEUMATOID ARTHRITIS
     Dosage: 40 MG (EVERY OTHER WEEK) SUBCUTANEOUS
     Route: 058
     Dates: start: 20060101

REACTIONS (4)
  - ABNORMAL BEHAVIOUR [None]
  - DRUG INTERACTION [None]
  - FEELING ABNORMAL [None]
  - THINKING ABNORMAL [None]
